FAERS Safety Report 17354472 (Version 2)
Quarter: 2020Q1

REPORT INFORMATION
  Report Type: Spontaneous
  Country: US (occurrence: US)
  Receive Date: 20200131
  Receipt Date: 20200203
  Transmission Date: 20200409
  Serious: No
  Sender: FDA-Public Use
  Company Number: US-TEVA-2020-US-1176696

PATIENT
  Age: 72 Year
  Sex: Male

DRUGS (2)
  1. BUPRENORPHINE. [Suspect]
     Active Substance: BUPRENORPHINE
     Indication: BACK PAIN
     Dosage: 1 PATCH A WEEK
     Route: 062
     Dates: start: 201910
  2. BUPRENORPHINE. [Suspect]
     Active Substance: BUPRENORPHINE
     Route: 062
     Dates: start: 201911

REACTIONS (1)
  - Chills [Unknown]

NARRATIVE: CASE EVENT DATE: 20200118
